FAERS Safety Report 11859787 (Version 1)
Quarter: 2015Q4

REPORT INFORMATION
  Report Type: Spontaneous
  Country: US (occurrence: US)
  Receive Date: 20151222
  Receipt Date: 20151222
  Transmission Date: 20160305
  Serious: No
  Sender: FDA-Public Use
  Company Number: US-DRREDDYS-USA/USA/14/0045202

PATIENT
  Age: 23 Year
  Sex: Male

DRUGS (1)
  1. HABITROL [Suspect]
     Active Substance: NICOTINE
     Indication: THERAPY CESSATION
     Route: 062

REACTIONS (2)
  - Feeling hot [Recovered/Resolved]
  - Pruritus generalised [Recovered/Resolved]
